FAERS Safety Report 7620227-5 (Version None)
Quarter: 2011Q3

REPORT INFORMATION
  Report Type: 
  Country: None (occurrence: None)
  Receive Date: 20110719
  Receipt Date: 20110706
  Transmission Date: 20111222
  Serious: Yes (Other)
  Sender: FDA-Public Use
  Company Number: PHHY2011DE60452

PATIENT

DRUGS (1)
  1. RASILEZ [Suspect]

REACTIONS (2)
  - VITAMIN B12 DEFICIENCY [None]
  - MEAN CELL VOLUME INCREASED [None]
